FAERS Safety Report 8459227-4 (Version None)
Quarter: 2012Q2

REPORT INFORMATION
  Report Type: 
  Country: None (occurrence: None)
  Receive Date: 20120618
  Receipt Date: 20120602
  Transmission Date: 20120825
  Serious: Yes (Other)
  Sender: FDA-Public Use
  Company Number: 2012SGN00256

PATIENT

DRUGS (1)
  1. ADCETRIS [Suspect]
     Indication: LYMPHOMA

REACTIONS (1)
  - RECTAL HAEMORRHAGE [None]
